FAERS Safety Report 13001010 (Version 1)
Quarter: 2016Q4

REPORT INFORMATION
  Report Type: Report from Study
  Country: US (occurrence: US)
  Receive Date: 20161206
  Receipt Date: 20161206
  Transmission Date: 20170207
  Serious: Yes (Hospitalization, Other)
  Sender: FDA-Public Use
  Company Number: US-ROCHE-1863616

PATIENT
  Age: 79 Year
  Sex: Female
  Weight: 98.97 kg

DRUGS (2)
  1. PREDNISONE. [Concomitant]
     Active Substance: PREDNISONE
     Dosage: ONGOING:NO
     Route: 065
  2. ACTEMRA [Suspect]
     Active Substance: TOCILIZUMAB
     Indication: TEMPORAL ARTERITIS
     Dosage: ONGOING:NO
     Route: 058
     Dates: start: 2015

REACTIONS (7)
  - Gout [Recovering/Resolving]
  - Peripheral swelling [Not Recovered/Not Resolved]
  - Cardiac pacemaker replacement [Recovered/Resolved]
  - Walking aid user [Not Recovered/Not Resolved]
  - Therapy cessation [Unknown]
  - Complication associated with device [Recovered/Resolved]
  - Off label use [Unknown]

NARRATIVE: CASE EVENT DATE: 20161118
